FAERS Safety Report 14508106 (Version 1)
Quarter: 2018Q1

REPORT INFORMATION
  Report Type: Spontaneous
  Country: US (occurrence: US)
  Receive Date: 20180208
  Receipt Date: 20180208
  Transmission Date: 20180509
  Serious: Yes (Life-Threatening, Hospitalization, Other)
  Sender: FDA-Public Use
  Company Number: US-BRISTOL-MYERS SQUIBB COMPANY-BMS-2018-011036

PATIENT
  Age: 70 Year
  Sex: Female
  Weight: 99 kg

DRUGS (1)
  1. APIXABAN [Suspect]
     Active Substance: APIXABAN
     Indication: CEREBROVASCULAR ACCIDENT PROPHYLAXIS
     Dosage: 5 MG, QD
     Route: 065
     Dates: start: 20170922

REACTIONS (3)
  - Gastrointestinal haemorrhage [Recovered/Resolved]
  - Pulseless electrical activity [Unknown]
  - Off label use [Unknown]

NARRATIVE: CASE EVENT DATE: 20171018
